FAERS Safety Report 10723159 (Version 1)
Quarter: 2015Q1

REPORT INFORMATION
  Report Type: Spontaneous
  Country: US (occurrence: US)
  Receive Date: 20150120
  Receipt Date: 20150120
  Transmission Date: 20150721
  Serious: No
  Sender: FDA-Public Use
  Company Number: US-PFIZER INC-2015017429

PATIENT
  Age: 42 Year
  Sex: Male

DRUGS (1)
  1. XALKORI [Suspect]
     Active Substance: CRIZOTINIB
     Indication: LUNG NEOPLASM MALIGNANT
     Dosage: 250 MG, 2X/DAY
     Dates: start: 20141213

REACTIONS (5)
  - Visual impairment [Unknown]
  - Diarrhoea [Unknown]
  - Photophobia [Unknown]
  - Blood iron decreased [Unknown]
  - Asthenia [Recovering/Resolving]
